FAERS Safety Report 6056921-X (Version None)
Quarter: 2009Q1

REPORT INFORMATION
  Report Type: 
  Country: None (occurrence: None)
  Receive Date: 20090129
  Receipt Date: 20090127
  Transmission Date: 20090719
  Serious: Yes (Hospitalization)
  Sender: FDA-Public Use
  Company Number: D0060301A

PATIENT
  Sex: Female

DRUGS (1)
  1. AUGMENTIN '125' [Suspect]
     Indication: URINARY TRACT INFECTION
     Route: 048

REACTIONS (5)
  - ASTHENIA [None]
  - DECREASED IMMUNE RESPONSIVENESS [None]
  - FATIGUE [None]
  - GASTRIC DISORDER [None]
  - RENAL DISORDER [None]
